FAERS Safety Report 9406299 (Version 1)
Quarter: 2013Q3

REPORT INFORMATION
  Report Type: Report from Study
  Country: TN (occurrence: TN)
  Receive Date: 20130717
  Receipt Date: 20130717
  Transmission Date: 20140515
  Serious: Yes (Death)
  Sender: FDA-Public Use
  Company Number: TN-SANOFI-AVENTIS-2013SA071390

PATIENT
  Age: 73 Year
  Sex: Female

DRUGS (8)
  1. PLAVIX [Suspect]
     Indication: ANGINA UNSTABLE
     Route: 048
     Dates: start: 20121108, end: 20130408
  2. ASPEGIC [Concomitant]
     Route: 048
     Dates: end: 20130408
  3. APROVEL [Concomitant]
     Route: 048
     Dates: end: 20130408
  4. AMLODIPINE [Concomitant]
     Route: 048
     Dates: end: 20130408
  5. ATORVASTATIN [Concomitant]
     Route: 048
     Dates: end: 20130408
  6. RISORDAN [Concomitant]
     Route: 048
     Dates: end: 20130408
  7. GLUCOPHAGE [Concomitant]
     Route: 048
     Dates: end: 20130408
  8. ALLOPURINOL [Concomitant]
     Route: 048
     Dates: end: 20130408

REACTIONS (3)
  - Acute pulmonary oedema [Fatal]
  - Drug ineffective [Fatal]
  - Thrombosis in device [Fatal]
